FAERS Safety Report 15179887 (Version 1)
Quarter: 2018Q3

REPORT INFORMATION
  Report Type: Spontaneous
  Country: BR (occurrence: BR)
  Receive Date: 20180723
  Receipt Date: 20180723
  Transmission Date: 20181010
  Serious: Yes (Other)
  Sender: FDA-Public Use
  Company Number: BR-MERCK KGAA-2052561

PATIENT
  Sex: Female

DRUGS (7)
  1. LEVOTHYROXINE. [Suspect]
     Active Substance: LEVOTHYROXINE
  2. LEVOTHYROXINE. [Suspect]
     Active Substance: LEVOTHYROXINE
  3. ENALAPRIL [Concomitant]
     Active Substance: ENALAPRIL
  4. CITALOPRAM [Concomitant]
     Active Substance: CITALOPRAM HYDROBROMIDE
  5. ATENOLOL. [Concomitant]
     Active Substance: ATENOLOL
  6. NOVOTHYROX [Suspect]
     Active Substance: LEVOTHYROXINE SODIUM
     Indication: PRODUCT USED FOR UNKNOWN INDICATION
  7. LEVOTHYROXINE. [Suspect]
     Active Substance: LEVOTHYROXINE

REACTIONS (3)
  - Arrhythmia [Recovered/Resolved]
  - Blood thyroid stimulating hormone abnormal [None]
  - Extra dose administered [None]

NARRATIVE: CASE EVENT DATE: 20170708
